FAERS Safety Report 24889568 (Version 1)
Quarter: 2025Q1

REPORT INFORMATION
  Report Type: Spontaneous
  Country: US (occurrence: None)
  Receive Date: 20250125
  Receipt Date: 20250125
  Transmission Date: 20250409
  Serious: Yes (Death)
  Sender: FDA-CTU
  Company Number: None

PATIENT
  Age: 67 Year
  Sex: Female

DRUGS (1)
  1. ONDANSETRON [Suspect]
     Active Substance: ONDANSETRON
     Indication: Breast cancer female
     Dosage: 16MG ONCE ON DAYS 1 AND 8 OF 21 DAY CYCLE

REACTIONS (1)
  - Death [None]

NARRATIVE: CASE EVENT DATE: 20250123
